FAERS Safety Report 25813201 (Version 1)
Quarter: 2025Q3

REPORT INFORMATION
  Report Type: Report from Study
  Country: US (occurrence: US)
  Receive Date: 20250917
  Receipt Date: 20250917
  Transmission Date: 20251021
  Serious: Yes (Other)
  Sender: ABBVIE
  Company Number: US-ABBVIE-6461808

PATIENT
  Age: 76 Year
  Sex: Female

DRUGS (1)
  1. RINVOQ [Suspect]
     Active Substance: UPADACITINIB
     Indication: Eczema
     Dosage: FORM STRENGTH 15MG
     Route: 048
     Dates: start: 20250312, end: 202508

REACTIONS (2)
  - Transfusion [Unknown]
  - Anaemia [Unknown]

NARRATIVE: CASE EVENT DATE: 20250101
